FAERS Safety Report 9531182 (Version 1)
Quarter: 2013Q2

REPORT INFORMATION
  Report Type: Spontaneous
  Country: US (occurrence: None)
  Receive Date: 20130402
  Receipt Date: 20130402
  Transmission Date: 20140414
  Serious: Yes (Life-Threatening, Hospitalization)
  Sender: FDA-Public Use
  Company Number: 2012-001741

PATIENT
  Age: 31 Year
  Sex: Female
  Weight: 68 kg

DRUGS (6)
  1. LOESTRIN 24 FE [Suspect]
     Indication: CONTRACEPTION
     Route: 048
     Dates: start: 201203, end: 20120501
  2. NOVOLIN (INSULIN HUMAN, INSULIN HUMAN INJECTION, ISOPHANE) [Concomitant]
  3. CALCIUM (CALCIUM) [Concomitant]
  4. FISH OIL (FISH OIL) [Concomitant]
  5. MULTIVITAMIN /00831701/(VITAMINS NOS) [Concomitant]
  6. EVENING PRIMROSE OIL (OENOTHERA BIENNIS OIL) [Concomitant]

REACTIONS (1)
  - Pulmonary embolism [None]
